FAERS Safety Report 8460880-X (Version None)
Quarter: 2012Q2

REPORT INFORMATION
  Report Type: 
  Country: None (occurrence: None)
  Receive Date: 20120625
  Receipt Date: 20120614
  Transmission Date: 20120825
  Serious: Yes (Other)
  Sender: FDA-Public Use
  Company Number: FR-BRISTOL-MYERS SQUIBB COMPANY-16688293

PATIENT
  Age: 23 Year
  Sex: Female

DRUGS (1)
  1. COUMADIN [Suspect]
     Indication: PULMONARY EMBOLISM
     Dosage: SCORED TABLET
     Route: 048
     Dates: start: 20100801

REACTIONS (2)
  - PREGNANCY [None]
  - ABORTION SPONTANEOUS [None]
